FAERS Safety Report 22897861 (Version 3)
Quarter: 2023Q4

REPORT INFORMATION
  Report Type: Spontaneous
  Country: US (occurrence: US)
  Receive Date: 20230903
  Receipt Date: 20231211
  Transmission Date: 20240110
  Serious: No
  Sender: FDA-Public Use
  Company Number: US-PHARMAESSENTIA CORPORATION-US-2023-PEC-001681

PATIENT
  Sex: Female

DRUGS (2)
  1. BESREMI [Suspect]
     Active Substance: ROPEGINTERFERON ALFA-2B-NJFT
     Indication: Myelofibrosis
     Dosage: 200 MCG, Q2W
     Route: 058
  2. BESREMI [Suspect]
     Active Substance: ROPEGINTERFERON ALFA-2B-NJFT
     Dosage: 50 MCG, Q2W
     Route: 058

REACTIONS (4)
  - Product dose omission issue [Unknown]
  - Product storage error [Unknown]
  - Product distribution issue [Unknown]
  - Off label use [Unknown]
